FAERS Safety Report 8987422 (Version 2)
Quarter: 2014Q2

REPORT INFORMATION
  Report Type: Spontaneous
  Country: TN (occurrence: TN)
  Receive Date: 20121227
  Receipt Date: 20130816
  Transmission Date: 20141212
  Serious: Yes (Death, Other)
  Sender: FDA-Public Use
  Company Number: TN-BAXTER-2012BAX028546

PATIENT
  Age: 19 Year
  Sex: Female

DRUGS (6)
  1. FEIBA NF 500 U [Suspect]
     Indication: ACQUIRED HAEMOPHILIA
  2. FEIBA NF 500 U [Suspect]
     Indication: POSTPARTUM HAEMORRHAGE
  3. ENDOXAN 1G [Suspect]
     Indication: PRODUCT USED FOR UNKNOWN INDICATION
     Route: 065
  4. NOVO SEVEN [Suspect]
     Indication: POSTPARTUM HAEMORRHAGE
  5. NOVO SEVEN [Suspect]
  6. PREDNISONE [Suspect]
     Indication: PRODUCT USED FOR UNKNOWN INDICATION
     Route: 065

REACTIONS (2)
  - Shock haemorrhagic [Fatal]
  - Drug ineffective [Unknown]
